FAERS Safety Report 8501745-4 (Version None)
Quarter: 2012Q3

REPORT INFORMATION
  Report Type: 
  Country: None (occurrence: None)
  Receive Date: 20120711
  Receipt Date: 20111020
  Transmission Date: 20120928
  Serious: No
  Sender: FDA-Public Use
  Company Number: 2009BI017129

PATIENT
  Age: 28 Year
  Sex: Female

DRUGS (5)
  1. BETASERON [Concomitant]
     Indication: MULTIPLE SCLEROSIS
  2. BENADRYL [Concomitant]
     Indication: PREMEDICATION
  3. TYSABRI [Suspect]
     Indication: MULTIPLE SCLEROSIS
     Route: 042
     Dates: start: 20090313, end: 20110817
  4. ACETAMINOPHEN [Concomitant]
     Indication: PREMEDICATION
  5. COPAXONE [Concomitant]
     Indication: MULTIPLE SCLEROSIS

REACTIONS (5)
  - NASOPHARYNGITIS [None]
  - RASH PRURITIC [None]
  - FATIGUE [None]
  - URTICARIA [None]
  - HYPERSENSITIVITY [None]
